FAERS Safety Report 9265299 (Version 2)
Quarter: 2013Q2

REPORT INFORMATION
  Report Type: Spontaneous
  Country: US (occurrence: US)
  Receive Date: 20130501
  Receipt Date: 20130518
  Transmission Date: 20140414
  Serious: Yes (Hospitalization)
  Sender: FDA-Public Use
  Company Number: US-BAXTER-2013BAX015443

PATIENT
  Age: 52 Year
  Sex: Female

DRUGS (4)
  1. DIANEAL LOW CALCIUM (ULTRABAG) [Suspect]
     Indication: PERITONEAL DIALYSIS
     Route: 033
     Dates: end: 201303
  2. DIANEAL LOW CALCIUM (ULTRABAG) [Suspect]
     Route: 033
     Dates: start: 20130325
  3. EXTRANEAL [Suspect]
     Indication: PERITONEAL DIALYSIS
     Route: 033
     Dates: end: 201303
  4. EXTRANEAL [Suspect]
     Route: 033
     Dates: start: 20130325

REACTIONS (2)
  - Coronary artery occlusion [Recovering/Resolving]
  - Peritoneal haemorrhage [Recovering/Resolving]
